FAERS Safety Report 22376311 (Version 1)
Quarter: 2023Q2

REPORT INFORMATION
  Report Type: Spontaneous
  Country: US (occurrence: US)
  Receive Date: 20230527
  Receipt Date: 20230527
  Transmission Date: 20230722
  Serious: Yes (Hospitalization)
  Sender: FDA-Public Use
  Company Number: US-STRIDES ARCOLAB LIMITED-2023SP007486

PATIENT
  Age: 32 Year
  Sex: Female

DRUGS (1)
  1. TOPIRAMATE [Suspect]
     Active Substance: TOPIRAMATE
     Indication: Product used for unknown indication
     Dosage: 36 GRAM, UNKNOWN
     Route: 048

REACTIONS (7)
  - Myoclonus [Unknown]
  - Depressed level of consciousness [Unknown]
  - Acidosis hyperchloraemic [Unknown]
  - Intentional product misuse [Unknown]
  - Encephalopathy [Recovered/Resolved]
  - Intentional overdose [Unknown]
  - Toxicity to various agents [Recovered/Resolved]
